FAERS Safety Report 8560415-7 (Version None)
Quarter: 2012Q3

REPORT INFORMATION
  Report Type: 
  Country: None (occurrence: None)
  Receive Date: 20120802
  Receipt Date: 20120801
  Transmission Date: 20120928
  Serious: Yes (Other)
  Sender: FDA-Public Use
  Company Number: VE-ROCHE-1095883

PATIENT
  Sex: Female
  Weight: 47 kg

DRUGS (3)
  1. AVASTIN [Suspect]
     Indication: LUNG NEOPLASM MALIGNANT
     Route: 040
     Dates: start: 20120627
  2. CISPLATIN [Concomitant]
     Indication: LUNG NEOPLASM MALIGNANT
  3. PEMETREXED [Concomitant]
     Indication: LUNG NEOPLASM MALIGNANT

REACTIONS (3)
  - BLOOD GLUCOSE DECREASED [None]
  - HYPERTENSION [None]
  - SYNCOPE [None]
